FAERS Safety Report 5868813-7 (Version None)
Quarter: 2008Q3

REPORT INFORMATION
  Report Type: 
  Country: None (occurrence: None)
  Receive Date: 20080902
  Receipt Date: 20080902
  Transmission Date: 20090109
  Serious: Yes (Other)
  Sender: FDA-Public Use
  Company Number: None

PATIENT
  Sex: Male
  Weight: 104.3273 kg

DRUGS (5)
  1. INVANZ [Suspect]
     Indication: FUNGAL INFECTION
     Dates: start: 20080815, end: 20080824
  2. INVANZ [Suspect]
     Indication: PSEUDOMONAS INFECTION
     Dates: start: 20080815, end: 20080824
  3. NORCO [Concomitant]
  4. DARVACET [Concomitant]
  5. TYLENOL (CAPLET) [Concomitant]

REACTIONS (3)
  - HALLUCINATIONS, MIXED [None]
  - MENTAL DISORDER [None]
  - URTICARIA [None]
